FAERS Safety Report 12113277 (Version 1)
Quarter: 2016Q1

REPORT INFORMATION
  Report Type: Spontaneous
  Country: GB (occurrence: GB)
  Receive Date: 20160225
  Receipt Date: 20160225
  Transmission Date: 20160526
  Serious: Yes (Other)
  Sender: FDA-Public Use
  Company Number: GB-AUROBINDO-AUR-APL-2013-09351

PATIENT
  Age: 78 Year
  Sex: Female

DRUGS (5)
  1. BISOPROLOL 2.5 MG [Suspect]
     Active Substance: BISOPROLOL
     Indication: PRODUCT USED FOR UNKNOWN INDICATION
     Dosage: 2.5 MG,UNK,
     Route: 048
     Dates: start: 201211
  2. CLOPIDOGREL [Concomitant]
     Active Substance: CLOPIDOGREL BISULFATE
     Indication: PRODUCT USED FOR UNKNOWN INDICATION
     Dosage: 75 MG,UNK,
     Route: 048
     Dates: end: 2012
  3. PRADAXA [Suspect]
     Active Substance: DABIGATRAN ETEXILATE MESYLATE
     Indication: CEREBROVASCULAR ACCIDENT
     Dosage: 110 MG, TWO TIMES A DAY
     Route: 048
     Dates: start: 201212
  4. AMLODIPINE [Concomitant]
     Active Substance: AMLODIPINE BESYLATE
     Indication: HYPERTENSION
     Dosage: 5 MG, UNK
     Route: 048
     Dates: start: 201103
  5. PRAVASTATIN SODIUM TABLETS 40MG [Suspect]
     Active Substance: PRAVASTATIN SODIUM
     Indication: DRUG ERUPTION
     Dosage: 40 MG,UNK,
     Route: 048
     Dates: start: 201211

REACTIONS (6)
  - Erythema [Not Recovered/Not Resolved]
  - Raynaud^s phenomenon [Not Recovered/Not Resolved]
  - Progressive massive fibrosis [Unknown]
  - Fixed drug eruption [Unknown]
  - Off label use [Unknown]
  - Product use issue [Unknown]

NARRATIVE: CASE EVENT DATE: 20121226
